FAERS Safety Report 7555116-8 (Version None)
Quarter: 2011Q2

REPORT INFORMATION
  Report Type: 
  Country: None (occurrence: None)
  Receive Date: 20110617
  Receipt Date: 20110614
  Transmission Date: 20111010
  Serious: Yes (Hospitalization)
  Sender: FDA-Public Use
  Company Number: SE-ABBOTT-10P-150-0684649-00

PATIENT
  Sex: Female

DRUGS (8)
  1. TROMBYL [Concomitant]
     Indication: PRODUCT USED FOR UNKNOWN INDICATION
  2. ACETAMINOPHEN [Concomitant]
     Indication: PRODUCT USED FOR UNKNOWN INDICATION
  3. AKINETON [Suspect]
     Indication: DRUG DEPENDENCE
  4. SIMVASTATIN [Concomitant]
     Indication: PRODUCT USED FOR UNKNOWN INDICATION
  5. AKINETON [Suspect]
     Indication: PARKINSONISM
     Dosage: 4MG DAILY
     Route: 048
     Dates: start: 20100801, end: 20100815
  6. AKINETON [Suspect]
     Indication: HYPERTONIA
  7. AKINETON [Suspect]
     Indication: MUSCLE RIGIDITY
  8. RISPERDAL CONSTA [Concomitant]
     Indication: PSYCHOTIC DISORDER
     Dosage: POWDER AND SOLVENT FOR PROLONGED- RELEASE SUSPENSION FOR INJECTION
     Route: 050

REACTIONS (2)
  - HALLUCINATION [None]
  - URINARY RETENTION [None]
